FAERS Safety Report 12428031 (Version 1)
Quarter: 2016Q2

REPORT INFORMATION
  Report Type: Spontaneous
  Country: US (occurrence: US)
  Receive Date: 20160602
  Receipt Date: 20160602
  Transmission Date: 20160815
  Serious: No
  Sender: FDA-Public Use
  Company Number: US-NOVEN PHARMACEUTICALS, INC.-US2016000246

PATIENT

DRUGS (11)
  1. DAYTRANA [Suspect]
     Active Substance: METHYLPHENIDATE
     Indication: ATTENTION DEFICIT/HYPERACTIVITY DISORDER
     Dosage: 30 MG, UNKNOWN
     Route: 062
  2. DAYTRANA [Suspect]
     Active Substance: METHYLPHENIDATE
     Dosage: CUTTING 30 MG PATCH INTO HALF, UNKNOWN
     Route: 062
  3. DAYTRANA [Suspect]
     Active Substance: METHYLPHENIDATE
     Dosage: 40 MG, UNKNOWN
     Route: 062
     Dates: start: 201605
  4. VALDRES [Concomitant]
  5. PENICILLIN VK [Concomitant]
     Active Substance: PENICILLIN V POTASSIUM
  6. NICARDIPINE HCL [Concomitant]
     Active Substance: NICARDIPINE HYDROCHLORIDE
     Indication: SLEEP DISORDER
  7. DAYTRANA [Suspect]
     Active Substance: METHYLPHENIDATE
     Indication: LYME DISEASE
     Dosage: 20 MG, BID
     Route: 062
     Dates: start: 2006
  8. MEPRON [Concomitant]
     Active Substance: ATOVAQUONE
  9. AUGMENTIN [Concomitant]
     Active Substance: AMOXICILLIN\CLAVULANATE POTASSIUM
  10. CYMBALTA [Concomitant]
     Active Substance: DULOXETINE HYDROCHLORIDE
     Indication: LYME DISEASE
  11. DAYTRANA [Suspect]
     Active Substance: METHYLPHENIDATE
     Dosage: CUTTING 30 MG PATCH INTO ONE THIRD, UNKNOWN
     Route: 062
     Dates: end: 201605

REACTIONS (9)
  - Toxicity to various agents [Recovered/Resolved]
  - Insomnia [Recovered/Resolved]
  - Prescribed overdose [Not Recovered/Not Resolved]
  - Tinnitus [Recovered/Resolved]
  - Off label use [Unknown]
  - Asthenia [Recovered/Resolved]
  - Wrong technique in product usage process [Not Recovered/Not Resolved]
  - Abdominal pain upper [Recovered/Resolved]
  - Depressed mood [Recovered/Resolved]

NARRATIVE: CASE EVENT DATE: 2006
